FAERS Safety Report 7843408-4 (Version None)
Quarter: 2011Q4

REPORT INFORMATION
  Report Type: 
  Country: None (occurrence: None)
  Receive Date: 20111025
  Receipt Date: 20111012
  Transmission Date: 20120403
  Serious: Yes (Hospitalization)
  Sender: FDA-Public Use
  Company Number: IN-ELI_LILLY_AND_COMPANY-IN200809006544

PATIENT
  Sex: Female
  Weight: 64 kg

DRUGS (10)
  1. VINFLUNINE [Suspect]
     Indication: BREAST CANCER METASTATIC
     Dosage: 320 MG/M2, OTHER
     Route: 042
     Dates: start: 20080716
  2. PSYLLIUM [Concomitant]
     Dates: start: 20080915
  3. RANITIDINE [Concomitant]
     Dates: end: 20080921
  4. DEXAMETHASONE [Concomitant]
     Dates: start: 20080917, end: 20080917
  5. FUROSEMIDE [Concomitant]
     Dates: start: 20080917, end: 20080917
  6. CEFTRIAXONE [Concomitant]
     Dates: start: 20080917, end: 20080917
  7. PALONOSETRON [Concomitant]
     Dates: start: 20080917, end: 20080917
  8. RINGER                             /00047801/ [Concomitant]
     Dates: start: 20080917, end: 20080917
  9. SALINE [Concomitant]
     Dates: start: 20080917, end: 20080917
  10. GEMCITABINE HYDROCHLORIDE [Suspect]
     Indication: BREAST CANCER METASTATIC
     Dosage: 320 MG/M2,  ON D1 EVERY 3 WEEKS
     Route: 042
     Dates: start: 20080716

REACTIONS (2)
  - SKIN ULCER [None]
  - FATIGUE [None]
